FAERS Safety Report 5009378-1 (Version None)
Quarter: 2006Q2

REPORT INFORMATION
  Report Type: 
  Country: None (occurrence: None)
  Receive Date: 20060522
  Receipt Date: 20060504
  Transmission Date: 20061013
  Serious: Yes (Death, Life-Threatening, Hospitalization)
  Sender: FDA-Public Use
  Company Number: 2005140758

PATIENT
  Age: 73 Year
  Sex: Male

DRUGS (8)
  1. BEXTRA [Suspect]
     Indication: ILL-DEFINED DISORDER
     Dosage: 20 MG, ORAL
     Route: 048
     Dates: start: 20030101
  2. ISOSORBIDE (ISOSORBIDE) [Concomitant]
  3. DIOVAN [Concomitant]
  4. LIPITOR [Concomitant]
  5. ZOLOFT [Concomitant]
  6. ASA (ACETYLSALICYLIC ACID)   (ACETYSALICYLIC ACID) [Concomitant]
  7. VITAMIN E [Concomitant]
  8. PLAVIX [Concomitant]

REACTIONS (9)
  - APHASIA [None]
  - CEREBRAL HAEMORRHAGE [None]
  - CEREBROVASCULAR ACCIDENT [None]
  - DYSPHAGIA [None]
  - HAEMORRHAGE INTRACRANIAL [None]
  - HEADACHE [None]
  - HEMIPLEGIA [None]
  - NAUSEA [None]
  - VOMITING [None]
